FAERS Safety Report 5952179-8 (Version None)
Quarter: 2008Q4

REPORT INFORMATION
  Report Type: 
  Country: None (occurrence: None)
  Receive Date: 20081113
  Receipt Date: 20080811
  Transmission Date: 20090506
  Serious: No
  Sender: FDA-Public Use
  Company Number: A0743141A

PATIENT
  Age: 49 Year
  Sex: Male

DRUGS (2)
  1. COREG [Suspect]
  2. DIOVAN [Concomitant]

REACTIONS (3)
  - BLOOD PRESSURE INCREASED [None]
  - FATIGUE [None]
  - MOOD ALTERED [None]
